FAERS Safety Report 11482583 (Version 2)
Quarter: 2015Q3

REPORT INFORMATION
  Report Type: Spontaneous
  Country: US (occurrence: US)
  Receive Date: 20150903
  Receipt Date: 20150903
  Transmission Date: 20151125
  Serious: No
  Sender: FDA-Public Use
  Company Number: US-ELI_LILLY_AND_COMPANY-US201204006678

PATIENT
  Age: 49 Year
  Sex: Female

DRUGS (1)
  1. CYMBALTA [Suspect]
     Active Substance: DULOXETINE HYDROCHLORIDE
     Dosage: UNK
     Dates: start: 2009

REACTIONS (14)
  - Weight increased [Unknown]
  - Musculoskeletal stiffness [Unknown]
  - Gait disturbance [Unknown]
  - Peripheral swelling [Unknown]
  - Feeling abnormal [Unknown]
  - Swelling face [Unknown]
  - Sensory disturbance [Unknown]
  - Amnesia [Not Recovered/Not Resolved]
  - Fall [Unknown]
  - Joint crepitation [Unknown]
  - Eye swelling [Unknown]
  - Memory impairment [Unknown]
  - Fatigue [Not Recovered/Not Resolved]
  - Hypoaesthesia [Unknown]
